FAERS Safety Report 7064080-X (Version None)
Quarter: 2010Q4

REPORT INFORMATION
  Report Type: 
  Country: None (occurrence: None)
  Receive Date: 20101027
  Receipt Date: 20101021
  Transmission Date: 20110411
  Serious: Yes (Hospitalization)
  Sender: FDA-Public Use
  Company Number: US-SHIRE-SPV1-2010-01837

PATIENT
  Age: 3 Year
  Sex: Male

DRUGS (1)
  1. ADDERALL XR 10 [Suspect]
     Dosage: 21 X 25 MG CAPSULES, ACCIDENTAL INGESTION
     Route: 048
     Dates: start: 20100525, end: 20100525

REACTIONS (6)
  - ACCIDENTAL DRUG INTAKE BY CHILD [None]
  - AGITATION [None]
  - HYPERHIDROSIS [None]
  - MYDRIASIS [None]
  - NERVOUSNESS [None]
  - TACHYCARDIA [None]
